FAERS Safety Report 7164117-3 (Version None)
Quarter: 2010Q4

REPORT INFORMATION
  Report Type: 
  Country: None (occurrence: None)
  Receive Date: 20101203
  Receipt Date: 20101117
  Transmission Date: 20110411
  Serious: Yes (Hospitalization)
  Sender: FDA-Public Use
  Company Number: 2010US000072

PATIENT
  Age: 27 Year
  Sex: Male

DRUGS (9)
  1. ENTEREG [Suspect]
     Indication: POSTOPERATIVE ILEUS
     Dosage: 12 MG; PO
     Route: 048
     Dates: start: 20101110, end: 20101114
  2. PENTASA [Concomitant]
  3. URSODIOL [Concomitant]
  4. PREDNISONE [Concomitant]
  5. MULTI-VITAMIN [Concomitant]
  6. VITAMIN B COMPLEX [Concomitant]
  7. LOVENOX [Concomitant]
  8. DILAUDID [Concomitant]
  9. TORADOL [Concomitant]

REACTIONS (2)
  - INTESTINAL OBSTRUCTION [None]
  - POSTOPERATIVE ILEUS [None]
